FAERS Safety Report 24993854 (Version 1)
Quarter: 2025Q1

REPORT INFORMATION
  Report Type: Spontaneous
  Country: US (occurrence: US)
  Receive Date: 20250221
  Receipt Date: 20250221
  Transmission Date: 20250409
  Serious: No
  Sender: DR REDDYS
  Company Number: US-DRL-USA-USA/2025/02/002340

PATIENT
  Age: 71 Year
  Sex: Female

DRUGS (1)
  1. CLONIDINE [Suspect]
     Active Substance: CLONIDINE
     Indication: Blood pressure measurement
     Dosage: QUANTITY: 4 IN 1 CARTON
     Dates: start: 20240816

REACTIONS (3)
  - Skin burning sensation [Unknown]
  - Erythema [Unknown]
  - Scab [Unknown]
